FAERS Safety Report 5223002-4 (Version None)
Quarter: 2007Q1

REPORT INFORMATION
  Report Type: 
  Country: None (occurrence: None)
  Receive Date: 20070129
  Receipt Date: 20070117
  Transmission Date: 20070707
  Serious: Yes (Death, Hospitalization, Other)
  Sender: FDA-Public Use
  Company Number: US-PFIZER INC-2006150839

PATIENT
  Sex: Female
  Weight: 70.8 kg

DRUGS (9)
  1. SUTENT [Suspect]
     Indication: METASTATIC RENAL CELL CARCINOMA
  2. WARFARIN SODIUM [Concomitant]
  3. TRICOR [Concomitant]
  4. CLONIDINE [Concomitant]
  5. COMPAZINE [Concomitant]
  6. LOPERAMIDE HCL [Concomitant]
  7. LASIX [Concomitant]
  8. METOPROLOL TARTRATE [Concomitant]
  9. ASPIRIN [Concomitant]

REACTIONS (11)
  - ARRHYTHMIA [None]
  - BLOOD CALCIUM ABNORMAL [None]
  - BLOOD CALCIUM DECREASED [None]
  - BLOOD CHLORIDE INCREASED [None]
  - BLOOD COPPER ABNORMAL [None]
  - CARDIAC FAILURE CONGESTIVE [None]
  - DEHYDRATION [None]
  - DIARRHOEA [None]
  - HYPERGLYCAEMIA [None]
  - RENAL FAILURE CHRONIC [None]
  - THROMBOCYTOPENIA [None]
